FAERS Safety Report 6222100-6 (Version None)
Quarter: 2009Q2

REPORT INFORMATION
  Report Type: 
  Country: None (occurrence: None)
  Receive Date: 20090608
  Receipt Date: 20090608
  Transmission Date: 20091009
  Serious: Yes (Other)
  Sender: FDA-Public Use
  Company Number: None

PATIENT
  Age: 20 Year
  Sex: Male
  Weight: 71.6683 kg

DRUGS (1)
  1. CYMBALTA [Suspect]
     Indication: MIGRAINE PROPHYLAXIS
     Dosage: 60MG ONCE DAILY PO
     Route: 048
     Dates: start: 20090427, end: 20090530

REACTIONS (12)
  - AMNESIA [None]
  - ANOREXIA [None]
  - ANXIETY [None]
  - ARTHRALGIA [None]
  - ATAXIA [None]
  - DRUG WITHDRAWAL SYNDROME [None]
  - GRIP STRENGTH DECREASED [None]
  - HYPERSOMNIA [None]
  - HYPOSOMNIA [None]
  - INSOMNIA [None]
  - IRRITABILITY [None]
  - MUSCULAR WEAKNESS [None]
